FAERS Safety Report 24083386 (Version 1)
Quarter: 2024Q3

REPORT INFORMATION
  Report Type: Spontaneous
  Country: US (occurrence: None)
  Receive Date: 20240712
  Receipt Date: 20240712
  Transmission Date: 20241017
  Serious: No
  Sender: ASTRAZENECA
  Company Number: 2024A150854

PATIENT
  Age: 44 Year
  Sex: Female

DRUGS (1)
  1. SYMLINPEN [Suspect]
     Active Substance: PRAMLINTIDE ACETATE
     Indication: Type 1 diabetes mellitus
     Dosage: UNKNOWN

REACTIONS (2)
  - Blood glucose abnormal [Unknown]
  - Device failure [Unknown]
